FAERS Safety Report 24726590 (Version 1)
Quarter: 2024Q4

REPORT INFORMATION
  Report Type: Spontaneous
  Country: DK (occurrence: DK)
  Receive Date: 20241212
  Receipt Date: 20241212
  Transmission Date: 20250115
  Serious: Yes (Hospitalization)
  Sender: ROCHE
  Company Number: None

PATIENT
  Age: 75 Year
  Sex: Male
  Weight: 90 kg

DRUGS (5)
  1. METALYSE [Suspect]
     Active Substance: TENECTEPLASE
     Indication: Thrombolysis
     Dosage: DOSE: 1 BOLUS.?STRENGHT: UNKNOWN
     Route: 042
     Dates: start: 20241106, end: 20241106
  2. CLOPIDOGREL [Concomitant]
     Active Substance: CLOPIDOGREL BISULFATE
     Indication: Thrombosis prophylaxis
     Dates: start: 20231002
  3. BENDROFLUMETHIAZIDE\POTASSIUM CHLORIDE [Concomitant]
     Active Substance: BENDROFLUMETHIAZIDE\POTASSIUM CHLORIDE
     Indication: Hypertension
     Dates: start: 20131022
  4. LOSARTAN POTASSIUM [Concomitant]
     Active Substance: LOSARTAN POTASSIUM
     Indication: Hypertension
     Dates: start: 20131022
  5. EZETIMIBE [Concomitant]
     Active Substance: EZETIMIBE
     Indication: Cardiovascular event prophylaxis
     Dates: start: 20240321

REACTIONS (2)
  - Blindness unilateral [Unknown]
  - Vitreous haemorrhage [Unknown]

NARRATIVE: CASE EVENT DATE: 20241106
